FAERS Safety Report 6179618-4 (Version None)
Quarter: 2009Q2

REPORT INFORMATION
  Report Type: 
  Country: None (occurrence: None)
  Receive Date: 20090505
  Receipt Date: 20090427
  Transmission Date: 20091009
  Serious: Yes (Death, Other)
  Sender: FDA-Public Use
  Company Number: JP-MERCK-0905USA00162

PATIENT
  Age: 50 Year
  Sex: Male

DRUGS (11)
  1. PRIMAXIN [Suspect]
     Indication: SEPSIS
     Route: 041
  2. NICARDIPINE HYDROCHLORIDE [Concomitant]
     Indication: BLOOD PRESSURE MANAGEMENT
     Route: 065
  3. NITROGLYCERIN [Concomitant]
     Indication: BLOOD PRESSURE MANAGEMENT
     Route: 065
  4. AMINOFLUID [Concomitant]
     Route: 041
  5. DOPAMINE HYDROCHLORIDE [Concomitant]
     Indication: BLOOD PRESSURE DECREASED
     Route: 065
  6. NOREPINEPHRINE [Concomitant]
     Indication: BLOOD PRESSURE DECREASED
     Route: 042
  7. NAFAMOSTAT MESYLATE [Concomitant]
     Indication: DISSEMINATED INTRAVASCULAR COAGULATION
     Route: 042
  8. ANTITHROMBIN III [Concomitant]
     Indication: DISSEMINATED INTRAVASCULAR COAGULATION
     Route: 042
  9. CEFAZOLIN SODIUM [Concomitant]
     Route: 042
  10. MEROPEN [Concomitant]
     Indication: SEPSIS
     Route: 041
  11. HEPARIN [Concomitant]
     Indication: ANTICOAGULANT THERAPY
     Route: 065

REACTIONS (6)
  - CYTOMEGALOVIRUS INFECTION [None]
  - HEPATIC FAILURE [None]
  - HEPATORENAL SYNDROME [None]
  - LIVER DISORDER [None]
  - MULTI-ORGAN FAILURE [None]
  - STAPHYLOCOCCAL INFECTION [None]
